FAERS Safety Report 14088775 (Version 3)
Quarter: 2017Q4

REPORT INFORMATION
  Report Type: Spontaneous
  Country: US (occurrence: US)
  Receive Date: 20171013
  Receipt Date: 20171212
  Transmission Date: 20180321
  Serious: Yes (Life-Threatening, Hospitalization, Other)
  Sender: FDA-Public Use
  Company Number: US-PFIZER INC-2017443572

PATIENT
  Age: 61 Year
  Sex: Female

DRUGS (3)
  1. MIDAZOLAM [Suspect]
     Active Substance: MIDAZOLAM HYDROCHLORIDE
     Indication: SEDATION
     Dosage: UNK
     Route: 042
  2. FENTANYL CITRATE. [Suspect]
     Active Substance: FENTANYL CITRATE
     Indication: SEDATION
     Dosage: UNK
     Route: 042
  3. OXYGEN. [Suspect]
     Active Substance: OXYGEN
     Indication: OXYGEN THERAPY
     Dosage: UNK (4 L/MIN WAS SECURED IN PLACE 4-5 CM FROM THE NOSTRILS)
     Route: 045

REACTIONS (5)
  - Gastric perforation [Recovered/Resolved]
  - Pneumoperitoneum [Recovered/Resolved]
  - Tachypnoea [Recovered/Resolved]
  - Tachycardia [Recovered/Resolved]
  - Oxygen saturation decreased [Recovered/Resolved]
